FAERS Safety Report 19714763 (Version 1)
Quarter: 2021Q3

REPORT INFORMATION
  Report Type: Spontaneous
  Country: PK (occurrence: PK)
  Receive Date: 20210818
  Receipt Date: 20210818
  Transmission Date: 20211014
  Serious: Yes (Other)
  Sender: FDA-Public Use
  Company Number: PK-SUN PHARMACEUTICAL INDUSTRIES LTD-2021R1-308224

PATIENT
  Age: 51 Year
  Sex: Male

DRUGS (1)
  1. ASPIRIN. [Suspect]
     Active Substance: ASPIRIN
     Indication: MYOCARDIAL ISCHAEMIA
     Dosage: UNK
     Route: 065

REACTIONS (2)
  - Pulmonary artery thrombosis [Unknown]
  - Cerebrovascular accident [Unknown]
